FAERS Safety Report 18379760 (Version 1)
Quarter: 2020Q4

REPORT INFORMATION
  Report Type: Spontaneous
  Country: US (occurrence: US)
  Receive Date: 20201014
  Receipt Date: 20201014
  Transmission Date: 20210114
  Serious: Yes (Hospitalization)
  Sender: FDA-Public Use
  Company Number: US-ACCORD-204736

PATIENT
  Age: 27 Year
  Sex: Male

DRUGS (6)
  1. TRENBOLONE [Concomitant]
     Active Substance: TRENBOLONE
  2. STANOZOLOL [Concomitant]
     Active Substance: STANOZOLOL
  3. FUROSEMIDE. [Suspect]
     Active Substance: FUROSEMIDE
     Indication: PRODUCT USED FOR UNKNOWN INDICATION
     Dosage: 40 MG TWICE DAILY
  4. IODINE (123 I) [Concomitant]
  5. TESTOSTERONE. [Concomitant]
     Active Substance: TESTOSTERONE
     Dosage: UNKNOWN?DOSES
  6. BOLDENONE UNDECYLENATE [Concomitant]
     Active Substance: BOLDENONE UNDECYLENATE

REACTIONS (1)
  - Thyrotoxic periodic paralysis [Recovered/Resolved]
